FAERS Safety Report 11044813 (Version 2)
Quarter: 2015Q2

REPORT INFORMATION
  Report Type: Spontaneous
  Country: US (occurrence: US)
  Receive Date: 20150417
  Receipt Date: 20150505
  Transmission Date: 20150821
  Serious: Yes (Hospitalization, Other)
  Sender: FDA-Public Use
  Company Number: US-UNITED THERAPEUTICS-UNT-2015-002615

PATIENT
  Age: 73 Year
  Sex: Female
  Weight: 68.48 kg

DRUGS (6)
  1. TYVASO [Suspect]
     Active Substance: TREPROSTINIL
     Dosage: 18-54 ?G, QID
  2. ASPIRIN                            /00002701/ [Concomitant]
     Active Substance: ASPIRIN
     Indication: PRODUCT USED FOR UNKNOWN INDICATION
  3. TYVASO [Suspect]
     Active Substance: TREPROSTINIL
     Indication: PULMONARY ARTERIAL HYPERTENSION
     Dosage: 18-54 ?G, QID
     Dates: start: 20150223
  4. PREDNISONE. [Concomitant]
     Active Substance: PREDNISONE
     Indication: PRODUCT USED FOR UNKNOWN INDICATION
  5. OPSUMIT [Concomitant]
     Active Substance: MACITENTAN
     Indication: PRODUCT USED FOR UNKNOWN INDICATION
  6. TYVASO [Suspect]
     Active Substance: TREPROSTINIL
     Dosage: 18-54 ?G, QID

REACTIONS (13)
  - Leukaemia [Unknown]
  - Musculoskeletal discomfort [Unknown]
  - Cough [Unknown]
  - Peripheral coldness [Unknown]
  - Blood pressure diastolic decreased [Unknown]
  - Pneumonia [Unknown]
  - Abdominal discomfort [Unknown]
  - Dysgeusia [Unknown]
  - Chest discomfort [Unknown]
  - Gout [Unknown]
  - Bursitis [Unknown]
  - Nausea [Unknown]
  - Wheezing [Unknown]

NARRATIVE: CASE EVENT DATE: 201503
